FAERS Safety Report 13851180 (Version 1)
Quarter: 2017Q3

REPORT INFORMATION
  Report Type: Spontaneous
  Country: SI (occurrence: SI)
  Receive Date: 20170809
  Receipt Date: 20170809
  Transmission Date: 20171127
  Serious: Yes (Other)
  Sender: FDA-Public Use
  Company Number: SI-TEVA-795591USA

PATIENT
  Sex: Female

DRUGS (1)
  1. ESCAPELLE [Suspect]
     Active Substance: LEVONORGESTREL
     Indication: POST COITAL CONTRACEPTION
     Dates: start: 20170728, end: 20170728

REACTIONS (2)
  - Muscle spasms [Recovered/Resolved]
  - Haemorrhage [Recovered/Resolved]

NARRATIVE: CASE EVENT DATE: 20170802
